FAERS Safety Report 7407924-1 (Version None)
Quarter: 2011Q2

REPORT INFORMATION
  Report Type: 
  Country: None (occurrence: None)
  Receive Date: 20110401
  Receipt Date: 20110325
  Transmission Date: 20111010
  Serious: Yes (Other)
  Sender: FDA-Public Use
  Company Number: 2011SP013815

PATIENT
  Age: 50 Year
  Sex: Female

DRUGS (1)
  1. SAPHRIS [Suspect]
     Indication: BIPOLAR DISORDER
     Dosage: 5 MG;Q12H;PO
     Route: 048
     Dates: start: 20110307, end: 20110309

REACTIONS (11)
  - LACERATION [None]
  - COMPULSIVE SHOPPING [None]
  - DYSARTHRIA [None]
  - VISUAL IMPAIRMENT [None]
  - ABASIA [None]
  - FALL [None]
  - IMPAIRED DRIVING ABILITY [None]
  - INSOMNIA [None]
  - DRY MOUTH [None]
  - MANIA [None]
  - ROAD TRAFFIC ACCIDENT [None]
